FAERS Safety Report 6579435-7 (Version None)
Quarter: 2010Q1

REPORT INFORMATION
  Report Type: 
  Country: None (occurrence: None)
  Receive Date: 20100209
  Receipt Date: 20100209
  Transmission Date: 20100710
  Serious: Yes (Disabling)
  Sender: FDA-Public Use
  Company Number: None

PATIENT
  Age: 28 Year
  Sex: Female

DRUGS (1)
  1. BASILIXUMAB -20MG/IVPB- [Suspect]
     Route: 042

REACTIONS (1)
  - DRUG DOSE OMISSION [None]
